FAERS Safety Report 4535309-4 (Version None)
Quarter: 2004Q4

REPORT INFORMATION
  Report Type: 
  Country: None (occurrence: None)
  Receive Date: 20041214
  Receipt Date: 20040920
  Transmission Date: 20050328
  Serious: No
  Sender: FDA-Public Use
  Company Number: 2004236957US

PATIENT
  Sex: Female
  Weight: 61.2 kg

DRUGS (5)
  1. BEXTRA [Suspect]
     Indication: OSTEOARTHRITIS
     Dosage: 10 MG, QD
     Dates: start: 20031201, end: 20040917
  2. FOSAMAX [Concomitant]
  3. MENEST [Concomitant]
  4. EFFEXOR [Concomitant]
  5. ARTHROTEC TABLET [Concomitant]

REACTIONS (6)
  - ANXIETY [None]
  - BLOOD BLISTER [None]
  - BOWEL SOUNDS ABNORMAL [None]
  - MOUTH INJURY [None]
  - STOMACH DISCOMFORT [None]
  - ULCER [None]
